FAERS Safety Report 14672978 (Version 1)
Quarter: 2018Q1

REPORT INFORMATION
  Report Type: Spontaneous
  Country: US (occurrence: US)
  Receive Date: 20180323
  Receipt Date: 20180323
  Transmission Date: 20180509
  Serious: Yes (Other)
  Sender: FDA-Public Use
  Company Number: US-ACCORD-064665

PATIENT
  Age: 10 Year
  Sex: Female

DRUGS (1)
  1. FLUOROURACIL. [Suspect]
     Active Substance: FLUOROURACIL
     Indication: NASOPHARYNGEAL CANCER

REACTIONS (2)
  - Cardiotoxicity [Recovering/Resolving]
  - Off label use [Unknown]
